FAERS Safety Report 7585625-7 (Version None)
Quarter: 2011Q2

REPORT INFORMATION
  Report Type: 
  Country: None (occurrence: None)
  Receive Date: 20110624
  Receipt Date: 20110616
  Transmission Date: 20111010
  Serious: Yes (Hospitalization)
  Sender: FDA-Public Use
  Company Number: 2011AC000038

PATIENT
  Age: 67 Year
  Sex: Female

DRUGS (6)
  1. SENNA [Concomitant]
  2. DOCUSATE [Concomitant]
  3. AMLODIPINE [Concomitant]
  4. FUROSEMIDE [Concomitant]
  5. DIGOXIN [Suspect]
     Dosage: PO
     Route: 048
  6. CLOZARIL [Concomitant]

REACTIONS (1)
  - OVERDOSE [None]
